FAERS Safety Report 16839028 (Version 1)
Quarter: 2019Q4

REPORT INFORMATION
  Report Type: Spontaneous
  Country: US (occurrence: US)
  Receive Date: 20190920
  Receipt Date: 20190920
  Transmission Date: 20200122
  Serious: Yes (Other)
  Sender: FDA-Public Use
  Company Number: None

PATIENT
  Age: 51 Year
  Sex: Female
  Weight: 63.9 kg

DRUGS (8)
  1. DYMISTA [Concomitant]
     Active Substance: AZELASTINE HYDROCHLORIDE\FLUTICASONE PROPIONATE
  2. SINGULAIR [Concomitant]
     Active Substance: MONTELUKAST SODIUM
  3. TRULANCE [Concomitant]
     Active Substance: PLECANATIDE
  4. FISH OIL [Concomitant]
     Active Substance: FISH OIL
  5. CLARITIN [Concomitant]
     Active Substance: LORATADINE
  6. MULTIVITAMIN [Concomitant]
     Active Substance: VITAMINS
  7. PROBIOTICS [Concomitant]
     Active Substance: PROBIOTICS NOS
  8. LEVOFLOXACIN. [Suspect]
     Active Substance: LEVOFLOXACIN
     Indication: SINUSITIS
     Dosage: ?          QUANTITY:10 TABLET(S);?
     Route: 048
     Dates: start: 20190619, end: 20190628

REACTIONS (3)
  - Tendon pain [None]
  - Tendon disorder [None]
  - Swelling [None]

NARRATIVE: CASE EVENT DATE: 20190630
